FAERS Safety Report 6158602-0 (Version None)
Quarter: 2009Q2

REPORT INFORMATION
  Report Type: 
  Country: None (occurrence: None)
  Receive Date: 20090417
  Receipt Date: 20090409
  Transmission Date: 20091009
  Serious: Yes (Hospitalization)
  Sender: FDA-Public Use
  Company Number: NL-B.I. PHARMACEUTICALS,INC./RIDGEFIELD-2009-NL-00234NL

PATIENT
  Sex: Male

DRUGS (5)
  1. PERSANTIN [Suspect]
     Dosage: 400MG
     Route: 048
     Dates: start: 20080725
  2. NEBILET [Concomitant]
     Dosage: 2.5MG
     Route: 048
     Dates: start: 20080725
  3. ACETYLSALIYL ACID [Concomitant]
     Dosage: 80MG
     Route: 048
     Dates: start: 20080725
  4. NEXIUM [Concomitant]
     Dosage: 80MG
     Route: 048
     Dates: start: 20031024
  5. PREDNISOLONE [Concomitant]
     Dosage: 10MG
     Route: 048

REACTIONS (8)
  - DECREASED APPETITE [None]
  - DIZZINESS [None]
  - FAECES DISCOLOURED [None]
  - FATIGUE [None]
  - FLATULENCE [None]
  - HAEMATOCHEZIA [None]
  - HEADACHE [None]
  - MALAISE [None]
